FAERS Safety Report 24066187 (Version 1)
Quarter: 2024Q3

REPORT INFORMATION
  Report Type: Spontaneous
  Country: CA (occurrence: CA)
  Receive Date: 20240709
  Receipt Date: 20240709
  Transmission Date: 20241016
  Serious: No
  Sender: AVEVA
  Company Number: CA-AVEVA-000685

PATIENT
  Age: 62 Year
  Sex: Female

DRUGS (1)
  1. NICOTINE [Suspect]
     Active Substance: NICOTINE
     Indication: Smoking cessation therapy
     Dosage: 1 DOSAGE FORM QD (21 MILLIGRAM/DAY)
     Route: 062
     Dates: start: 202405, end: 202406

REACTIONS (3)
  - Erythema [Recovered/Resolved]
  - Skin burning sensation [Recovered/Resolved]
  - Pruritus [Recovered/Resolved]

NARRATIVE: CASE EVENT DATE: 20240501
